FAERS Safety Report 7231221-0 (Version None)
Quarter: 2011Q1

REPORT INFORMATION
  Report Type: 
  Country: None (occurrence: None)
  Receive Date: 20110118
  Receipt Date: 20110111
  Transmission Date: 20110831
  Serious: Yes (Other)
  Sender: FDA-Public Use
  Company Number: B0686106A

PATIENT
  Age: 43 Year
  Sex: Female

DRUGS (1)
  1. AUGMENTIN '125' [Suspect]
     Indication: CHOLECYSTITIS
     Dosage: 1.2MG SINGLE DOSE
     Route: 042
     Dates: start: 20100724, end: 20100724

REACTIONS (7)
  - RASH [None]
  - HYPOTENSION [None]
  - ANAPHYLACTIC REACTION [None]
  - OXYGEN SATURATION [None]
  - VOMITING [None]
  - ASTHENIA [None]
  - DYSPNOEA [None]
